FAERS Safety Report 10550019 (Version 3)
Quarter: 2015Q1

REPORT INFORMATION
  Report Type: Spontaneous
  Country: US (occurrence: US)
  Receive Date: 20141028
  Receipt Date: 20150121
  Transmission Date: 20150720
  Serious: No
  Sender: FDA-Public Use
  Company Number: US-BAUSCH-BL-2014-004485

PATIENT
  Sex: Male
  Weight: 79.45 kg

DRUGS (2)
  1. PROLENSA [Suspect]
     Active Substance: BROMFENAC SODIUM
     Indication: MACULAR OEDEMA
     Route: 047
     Dates: start: 2014, end: 20140827
  2. PREDNISONE. [Concomitant]
     Active Substance: PREDNISONE
     Indication: PRODUCT USED FOR UNKNOWN INDICATION
     Route: 047
     Dates: start: 2014, end: 20140827

REACTIONS (5)
  - Vision blurred [Unknown]
  - Photophobia [Unknown]
  - Off label use [Recovered/Resolved]
  - Eye irritation [Unknown]
  - Dry eye [Unknown]

NARRATIVE: CASE EVENT DATE: 2014
